FAERS Safety Report 7633916-3 (Version None)
Quarter: 2011Q3

REPORT INFORMATION
  Report Type: 
  Country: None (occurrence: None)
  Receive Date: 20110725
  Receipt Date: 20110715
  Transmission Date: 20111222
  Serious: Yes (Hospitalization, Disabling, Other)
  Sender: FDA-Public Use
  Company Number: US-ABBOTT-11P-163-0839401-00

PATIENT
  Age: 42 Year
  Sex: Male
  Weight: 102.11 kg

DRUGS (6)
  1. ARTHROTEC [Suspect]
     Indication: BONE PAIN
     Route: 048
     Dates: start: 20100601, end: 20100701
  2. PROTONIX [Suspect]
     Indication: GASTROOESOPHAGEAL REFLUX DISEASE
     Route: 048
     Dates: start: 20040101
  3. VICODIN [Suspect]
     Indication: BONE PAIN
     Dosage: 5/500MG, 2X/DAY
     Route: 048
     Dates: start: 20100701
  4. IBUPROFEN [Suspect]
     Indication: PRODUCT USED FOR UNKNOWN INDICATION
     Route: 048
  5. ASPIRIN [Suspect]
     Indication: PRODUCT USED FOR UNKNOWN INDICATION
     Route: 048
  6. TRAZODONE HCL [Concomitant]
     Indication: SLEEP DISORDER
     Dosage: 50 MG ONCE DAILY BEFORE BED
     Route: 048
     Dates: start: 19800101

REACTIONS (16)
  - DRUG INEFFECTIVE [None]
  - BONE PAIN [None]
  - OEDEMA PERIPHERAL [None]
  - HEPATIC FUNCTION ABNORMAL [None]
  - LOWER LIMB FRACTURE [None]
  - GAIT DISTURBANCE [None]
  - SOMNAMBULISM [None]
  - HYPERSENSITIVITY [None]
  - FALL [None]
  - LEUKAEMIA [None]
  - BONE MARROW DISORDER [None]
  - PSORIASIS [None]
  - VOMITING [None]
  - RASH [None]
  - SCAR [None]
  - AMNESIA [None]
